FAERS Safety Report 11003752 (Version 1)
Quarter: 2015Q2

REPORT INFORMATION
  Report Type: Spontaneous
  Country: FR (occurrence: FR)
  Receive Date: 20150409
  Receipt Date: 20150409
  Transmission Date: 20150821
  Serious: Yes (Hospitalization)
  Sender: FDA-Public Use
  Company Number: FR-009507513-1504FRA001501

PATIENT
  Age: 68 Year
  Sex: Female

DRUGS (10)
  1. LASILIX [Concomitant]
     Active Substance: FUROSEMIDE
     Dosage: 40 MG, MORNING AND MIDDAY
  2. ZYLORIC [Concomitant]
     Active Substance: ALLOPURINOL
     Dosage: 100 MG, MORNING
  3. INEXIUM (ESOMEPRAZOLE MAGNESIUM) [Concomitant]
     Active Substance: ESOMEPRAZOLE MAGNESIUM
     Dosage: 20 MG, QPM
  4. GALVUS [Concomitant]
     Active Substance: VILDAGLIPTIN
     Dosage: 50 MG, QAM
  5. CELLCEPT [Concomitant]
     Active Substance: MYCOPHENOLATE MOFETIL\MYCOPHENOLATE MOFETIL HYDROCHLORIDE
     Dosage: 500 MG, MORNING AN EVENING
  6. ADVAGRAF [Concomitant]
     Active Substance: TACROLIMUS
     Dosage: 2 MG, QAM
  7. ARANESP [Concomitant]
     Active Substance: DARBEPOETIN ALFA
     Dosage: 60 MICROGRAM, QW
  8. LANTUS [Concomitant]
     Active Substance: INSULIN GLARGINE
     Dosage: 6 IU, QPM
  9. REPAGLINIDE. [Concomitant]
     Active Substance: REPAGLINIDE
     Dosage: 2 MG, MIDDAY AND EVENING
  10. INVANZ [Suspect]
     Active Substance: ERTAPENEM SODIUM
     Dosage: UNK
     Route: 042
     Dates: start: 20141216, end: 20141219

REACTIONS (1)
  - Status epilepticus [Recovered/Resolved]

NARRATIVE: CASE EVENT DATE: 20141219
